FAERS Safety Report 21688877 (Version 1)
Quarter: 2022Q4

REPORT INFORMATION
  Report Type: Spontaneous
  Country: US (occurrence: None)
  Receive Date: 20221205
  Receipt Date: 20221205
  Transmission Date: 20230113
  Serious: Yes (unspecified)
  Sender: FDA-Public Use
  Company Number: None

PATIENT
  Age: 70 Year
  Sex: Female
  Weight: 60.3 kg

DRUGS (3)
  1. PACLITAXEL [Suspect]
     Active Substance: PACLITAXEL
     Indication: Oesophageal carcinoma
     Dosage: FREQUENCY : ONCE;?
     Route: 041
     Dates: start: 20221202, end: 20221202
  2. Diphenhydramine 25 mg IVP [Concomitant]
     Dates: start: 20221202, end: 20221202
  3. EPIPEN [Concomitant]
     Active Substance: EPINEPHRINE
     Dates: start: 20221202, end: 20221202

REACTIONS (1)
  - Infusion related reaction [None]

NARRATIVE: CASE EVENT DATE: 20221202
